FAERS Safety Report 4524212-1 (Version None)
Quarter: 2004Q4

REPORT INFORMATION
  Report Type: 
  Country: None (occurrence: None)
  Receive Date: 20041209
  Receipt Date: 20041126
  Transmission Date: 20050328
  Serious: Yes (Hospitalization)
  Sender: FDA-Public Use
  Company Number: 2004UW24443

PATIENT
  Age: 60 Year
  Sex: Female

DRUGS (11)
  1. SEROQUEL [Suspect]
     Dosage: 25 MG BID PO
     Route: 048
     Dates: start: 20041110
  2. SEROQUEL [Suspect]
     Dosage: 100 MG TID PO
     Route: 048
  3. PRAVACHOL [Concomitant]
  4. LITHIUM [Concomitant]
  5. LAMOTRIGINE [Concomitant]
  6. CLONAZEPAM [Concomitant]
  7. TEMAZEPAM [Concomitant]
  8. BUPROPION HCL [Concomitant]
  9. ELTROXIN [Concomitant]
  10. PREMARIN [Concomitant]
  11. MOBICOX [Concomitant]

REACTIONS (3)
  - BIPOLAR DISORDER [None]
  - CONDITION AGGRAVATED [None]
  - ELECTROCARDIOGRAM QT PROLONGED [None]
